FAERS Safety Report 4319307-1 (Version None)
Quarter: 2004Q1

REPORT INFORMATION
  Report Type: 
  Country: None (occurrence: None)
  Receive Date: 20040316
  Receipt Date: 20040304
  Transmission Date: 20041129
  Serious: Yes (Death)
  Sender: FDA-Public Use
  Company Number: JP-JNJFOC-20040302326

PATIENT
  Age: 68 Year
  Sex: Male

DRUGS (11)
  1. FENTANYL [Suspect]
     Indication: CANCER PAIN
     Dosage: SEE IMAGE
     Route: 062
     Dates: start: 20030126, end: 20040203
  2. FENTANYL [Suspect]
     Indication: CANCER PAIN
     Dosage: SEE IMAGE
     Route: 062
     Dates: start: 20040204, end: 20040209
  3. BISACODYL (BISACODYL) [Concomitant]
  4. SODIUM PICOSULFATE (SODIUM PICOSULFATE) [Concomitant]
  5. PANTHENOL (PANTHENOL) [Concomitant]
  6. METOCLOPRAMIDE [Concomitant]
  7. FAMOTIDINE [Concomitant]
  8. FUROSEMIDE [Concomitant]
  9. BETAMETHASONE [Concomitant]
  10. INSULIN HUMAN (INSULIN HUMAN) [Concomitant]
  11. HALOPERIDOL [Concomitant]

REACTIONS (1)
  - DEATH [None]
